FAERS Safety Report 9802163 (Version 1)
Quarter: 2014Q1

REPORT INFORMATION
  Report Type: Spontaneous
  Country: US (occurrence: US)
  Receive Date: 20140107
  Receipt Date: 20140107
  Transmission Date: 20141002
  Serious: Yes (Death, Other)
  Sender: FDA-Public Use
  Company Number: US-UCBSA-108310

PATIENT
  Age: 82 Year
  Sex: Female

DRUGS (5)
  1. ACETAMINOPHEN/HYDROCODONE [Suspect]
     Dosage: ROUTE: INGESTION
     Route: 048
  2. AMITRIPTYLINE [Suspect]
     Dosage: ROUTE: INGESTION
     Route: 048
  3. DIPHENHYDRAMINE [Suspect]
     Dosage: ROUTE: INGESTION
     Route: 048
  4. LOSARTAN [Suspect]
     Dosage: ROUTE: INGESTION
     Route: 048
  5. SIMVASTATIN [Suspect]
     Dosage: ROUTE: INGESTION
     Route: 048

REACTIONS (2)
  - Cardio-respiratory arrest [Fatal]
  - Completed suicide [Fatal]
